FAERS Safety Report 4862366-8 (Version None)
Quarter: 2005Q4

REPORT INFORMATION
  Report Type: 
  Country: None (occurrence: None)
  Receive Date: 20051128
  Receipt Date: 20050815
  Transmission Date: 20060501
  Serious: No
  Sender: FDA-Public Use
  Company Number: 216895

PATIENT
  Sex: Male

DRUGS (1)
  1. RAPTIVA [Suspect]

REACTIONS (1)
  - INFLUENZA LIKE ILLNESS [None]
